FAERS Safety Report 13592804 (Version 2)
Quarter: 2017Q2

REPORT INFORMATION
  Report Type: Spontaneous
  Country: CL (occurrence: CL)
  Receive Date: 20170530
  Receipt Date: 20170623
  Transmission Date: 20170830
  Serious: Yes (Other)
  Sender: FDA-Public Use
  Company Number: PHHY2017CL075804

PATIENT
  Sex: Female

DRUGS (1)
  1. TAREG D [Suspect]
     Active Substance: HYDROCHLOROTHIAZIDE\VALSARTAN
     Indication: PRODUCT USED FOR UNKNOWN INDICATION
     Dosage: UNK
     Route: 065

REACTIONS (7)
  - Choking [Unknown]
  - Headache [Not Recovered/Not Resolved]
  - Hot flush [Unknown]
  - Feeling abnormal [Unknown]
  - Drug dispensing error [Unknown]
  - Wrong technique in product usage process [Unknown]
  - Dyspepsia [Unknown]
